FAERS Safety Report 10674603 (Version 1)
Quarter: 2014Q4

REPORT INFORMATION
  Report Type: Spontaneous
  Country: GB (occurrence: GB)
  Receive Date: 20141224
  Receipt Date: 20141224
  Transmission Date: 20150529
  Serious: Yes (Hospitalization, Other)
  Sender: FDA-Public Use
  Company Number: GB-ACTAVISPR-2014-27142

PATIENT
  Age: 26 Year
  Sex: Male

DRUGS (3)
  1. GABAPENTIN (UNKNOWN) [Suspect]
     Active Substance: GABAPENTIN
     Indication: DRUG ABUSE
     Dosage: 1600 MG, SINGLE
     Route: 048
  2. METHADONE [Concomitant]
     Active Substance: METHADONE HYDROCHLORIDE
     Indication: EX-DRUG ABUSER
     Dosage: UNK
     Route: 065
  3. GABAPENTIN (UNKNOWN) [Suspect]
     Active Substance: GABAPENTIN
     Indication: DRUG DIVERSION

REACTIONS (3)
  - Substance use [Recovered/Resolved]
  - Dystonia [Recovered/Resolved]
  - Drug abuse [Unknown]
